FAERS Safety Report 12220447 (Version 1)
Quarter: 2016Q1

REPORT INFORMATION
  Report Type: Spontaneous
  Country: US (occurrence: None)
  Receive Date: 20160329
  Receipt Date: 20160329
  Transmission Date: 20160526
  Serious: Yes (Hospitalization)
  Sender: FDA-Public Use
  Company Number: None

PATIENT
  Age: 72 Year
  Sex: Male
  Weight: 73 kg

DRUGS (1)
  1. FLUOXETINE [Suspect]
     Active Substance: FLUOXETINE HYDROCHLORIDE
     Indication: DEPRESSION
     Route: 048
     Dates: start: 20150625, end: 20150901

REACTIONS (5)
  - Hyponatraemia [None]
  - Inappropriate antidiuretic hormone secretion [None]
  - Endocrine disorder [None]
  - Hypothyroidism [None]
  - Adrenal insufficiency [None]

NARRATIVE: CASE EVENT DATE: 20150901
